FAERS Safety Report 17027313 (Version 1)
Quarter: 2019Q4

REPORT INFORMATION
  Report Type: Spontaneous
  Country: GB (occurrence: GB)
  Receive Date: 20191113
  Receipt Date: 20191113
  Transmission Date: 20200122
  Serious: Yes (Other)
  Sender: FDA-Public Use
  Company Number: GB-ASTRAZENECA-2019SF59296

PATIENT
  Age: 65 Year
  Sex: Female

DRUGS (5)
  1. OMEPRAZOLE. [Suspect]
     Active Substance: OMEPRAZOLE
     Route: 048
  2. LANSOPRAZOLE. [Concomitant]
     Active Substance: LANSOPRAZOLE
  3. IRESSA [Suspect]
     Active Substance: GEFITINIB
     Dosage: DAILY
     Route: 048
  4. CLOPIDOGREL [Concomitant]
     Active Substance: CLOPIDOGREL BISULFATE
  5. IRESSA [Suspect]
     Active Substance: GEFITINIB
     Dosage: EVERY SECOND DAY AS PER INSTRUCTIONS FROM MY ONCOLOGIST
     Route: 048

REACTIONS (9)
  - Insomnia [Unknown]
  - Product use issue [Unknown]
  - Cardiac arrest [Unknown]
  - Irritable bowel syndrome [Unknown]
  - Cerebrovascular accident [Unknown]
  - Alopecia [Unknown]
  - Anxiety [Unknown]
  - Off label use [Unknown]
  - Haemorrhage [Unknown]
